FAERS Safety Report 8323068-9 (Version None)
Quarter: 2012Q2

REPORT INFORMATION
  Report Type: 
  Country: None (occurrence: None)
  Receive Date: 20120430
  Receipt Date: 20120416
  Transmission Date: 20120825
  Serious: Yes (Hospitalization, Other)
  Sender: FDA-Public Use
  Company Number: US-MYLANLABS-2009AC000294

PATIENT
  Age: 70 Year
  Sex: Female
  Weight: 64.18 kg

DRUGS (73)
  1. ASPIRIN [Concomitant]
  2. CLONIDINE [Concomitant]
  3. HYDROCHLOROTHIAZIDE [Concomitant]
  4. FISH OIL [Concomitant]
  5. THYROID TAB [Concomitant]
  6. I-VITE [Concomitant]
  7. AMLODIPINE [Concomitant]
  8. DOXYCYCLINE HYCLATE [Concomitant]
  9. FOSAMAX [Concomitant]
  10. INFLUENZA VACCINE [Concomitant]
  11. MIRALAX /00754501/ [Concomitant]
  12. ULTRAM [Concomitant]
  13. CILOSTAZOL [Concomitant]
  14. ATIVAN [Concomitant]
  15. NIFEDIPINE [Concomitant]
  16. CELEBREX [Concomitant]
  17. ELOCON [Concomitant]
  18. GLUCOSAMIN CHONDROITIN /01430901/ [Concomitant]
  19. OSTEO BI-FLEX [Concomitant]
     Dosage: 250-200MG
  20. STOOL SOFTENER [Concomitant]
  21. NORVASC [Concomitant]
  22. NEURO B12 FORTE [Concomitant]
  23. DOCUSATE [Concomitant]
  24. CYANOCOBALAMIN [Concomitant]
     Dosage: MCG/ML
  25. HYDROCODONE [Concomitant]
  26. PREMARIN [Concomitant]
  27. ATARAX [Concomitant]
  28. FAMCICLOVIR [Concomitant]
  29. CAMPHOR W/MENTHOL [Concomitant]
     Dosage: MOISTURIZING CREAM
  30. PROCARDIA /00340701/ [Concomitant]
  31. ACYCLOVIR [Concomitant]
  32. CARTIA XT [Concomitant]
  33. CALCIUM [Concomitant]
  34. HYZAAR [Concomitant]
  35. TRAMADOL HCL [Concomitant]
  36. ZOLPIDEM [Concomitant]
  37. WARFARIN SODIUM [Concomitant]
  38. CEPHALEXIN [Concomitant]
  39. FLUCONAZOLE [Concomitant]
  40. JANTOVEN [Concomitant]
  41. CALCIUM + VITAMIN D /01483701/ [Concomitant]
  42. HYDROCODONE BITARTRATE + ACETAMINOPHEN [Concomitant]
     Dosage: 5/500
  43. LORCET-HD [Concomitant]
     Dosage: 7.5/650
  44. CYANOCOBALAMIN [Concomitant]
  45. METHYLPREDNISOLONE [Concomitant]
  46. PRILOSEC [Concomitant]
  47. TOPROL-XL [Concomitant]
  48. DIGOXIN [Suspect]
     Route: 048
     Dates: start: 20080225
  49. SIMVASTATIN [Concomitant]
  50. SYNTHROID [Concomitant]
  51. DORYX [Concomitant]
  52. FOLIC ACID [Concomitant]
  53. LASIX [Concomitant]
  54. THIAMINE HCL [Concomitant]
  55. METRONIDAZOLE [Concomitant]
  56. MOMETASONE FUROATE [Concomitant]
  57. BENICAR [Concomitant]
  58. CARDIZEM [Concomitant]
  59. KEFLEX [Concomitant]
  60. ZONALON [Concomitant]
  61. COUMADIN [Concomitant]
  62. VYTORIN [Concomitant]
     Dosage: 10/10MG
  63. PREDNISONE [Concomitant]
  64. TOPROL-XL [Concomitant]
  65. METOPROLOL TARTRATE [Concomitant]
  66. HYDROXYZINE [Concomitant]
  67. ARICEPT [Concomitant]
  68. MEDROL [Concomitant]
  69. AMBIEN [Concomitant]
  70. LIDODERM [Concomitant]
     Dosage: 700MG
  71. FAMVIR /01226201/ [Concomitant]
  72. BENZACLIN [Concomitant]
     Dosage: 1%-5%
  73. PLETAL [Concomitant]

REACTIONS (126)
  - INJURY [None]
  - ILL-DEFINED DISORDER [None]
  - RASH [None]
  - PERIPHERAL VASCULAR DISORDER [None]
  - BASAL CELL CARCINOMA [None]
  - NEOPLASM [None]
  - BUNDLE BRANCH BLOCK RIGHT [None]
  - SICK SINUS SYNDROME [None]
  - FATIGUE [None]
  - DYSPNOEA EXERTIONAL [None]
  - INCREASED APPETITE [None]
  - DIZZINESS [None]
  - HYPOAESTHESIA [None]
  - CAROTID BRUIT [None]
  - FALL [None]
  - NEUROPATHY PERIPHERAL [None]
  - BONE PAIN [None]
  - X-RAY ABNORMAL [None]
  - RASH ERYTHEMATOUS [None]
  - RIB FRACTURE [None]
  - ECONOMIC PROBLEM [None]
  - DYSPNOEA [None]
  - ASTHENIA [None]
  - VISION BLURRED [None]
  - ISCHAEMIA [None]
  - ARTERIAL INSUFFICIENCY [None]
  - NEUROLOGICAL SYMPTOM [None]
  - MUSCULOSKELETAL STIFFNESS [None]
  - WEIGHT INCREASED [None]
  - ARTHRALGIA [None]
  - SKIN LESION [None]
  - AURICULAR PERICHONDRITIS [None]
  - VULVOVAGINAL PAIN [None]
  - VAGINAL INFECTION [None]
  - ANXIETY [None]
  - BURNING SENSATION [None]
  - PAIN [None]
  - INSOMNIA [None]
  - BLISTER [None]
  - DIASTOLIC DYSFUNCTION [None]
  - NUCLEAR MAGNETIC RESONANCE IMAGING ABNORMAL [None]
  - TRANSIENT ISCHAEMIC ATTACK [None]
  - ATRIAL FIBRILLATION [None]
  - EYE HAEMORRHAGE [None]
  - AUTONOMIC NERVOUS SYSTEM IMBALANCE [None]
  - ARTERIAL DISORDER [None]
  - DILATATION ATRIAL [None]
  - HEART INJURY [None]
  - ARTERIOSCLEROSIS [None]
  - HYPOTHYROIDISM [None]
  - VAGINAL LESION [None]
  - VULVITIS [None]
  - PRURITUS [None]
  - BLOOD PRESSURE DIASTOLIC DECREASED [None]
  - EMOTIONAL DISORDER [None]
  - CARDIAC MURMUR [None]
  - CORONARY ARTERY DISEASE [None]
  - NODAL RHYTHM [None]
  - ARTICULAR CALCIFICATION [None]
  - ARTHRITIS [None]
  - NECK PAIN [None]
  - PRODUCTIVE COUGH [None]
  - MENTAL STATUS CHANGES [None]
  - BACK PAIN [None]
  - TENDERNESS [None]
  - LABORATORY TEST ABNORMAL [None]
  - RASH MACULAR [None]
  - BLOOD PRESSURE ABNORMAL [None]
  - HYPOTENSION [None]
  - LENTIGO [None]
  - CARDIAC VALVE DISEASE [None]
  - VITAMIN B12 DEFICIENCY [None]
  - MUSCULOSKELETAL PAIN [None]
  - DYSLIPIDAEMIA [None]
  - TOOTH EXTRACTION [None]
  - SINUSITIS [None]
  - PALPITATIONS [None]
  - ABSCESS [None]
  - OTITIS EXTERNA [None]
  - PROCTALGIA [None]
  - ATROPHIC VULVOVAGINITIS [None]
  - CONTUSION [None]
  - ABDOMINAL TENDERNESS [None]
  - CONFUSIONAL STATE [None]
  - GAIT DISTURBANCE [None]
  - OEDEMA [None]
  - ACTINIC KERATOSIS [None]
  - AMNESIA [None]
  - JOINT RANGE OF MOTION DECREASED [None]
  - NASOPHARYNGITIS [None]
  - COCCYDYNIA [None]
  - TINEA CRURIS [None]
  - DYSARTHRIA [None]
  - SKELETAL INJURY [None]
  - MUSCULAR WEAKNESS [None]
  - ECHOCARDIOGRAM ABNORMAL [None]
  - TOXICITY TO VARIOUS AGENTS [None]
  - HERPES ZOSTER [None]
  - BIFASCICULAR BLOCK [None]
  - POLYMYALGIA RHEUMATICA [None]
  - ARTHROPATHY [None]
  - TENDON OPERATION [None]
  - VULVOVAGINAL ERYTHEMA [None]
  - ABDOMINAL DISCOMFORT [None]
  - SKIN EXFOLIATION [None]
  - MUSCULOSKELETAL DISORDER [None]
  - JOINT EFFUSION [None]
  - PEDAL PULSE DECREASED [None]
  - HYPERTENSION [None]
  - CARDIAC FAILURE CONGESTIVE [None]
  - RENAL FAILURE CHRONIC [None]
  - LEFT VENTRICULAR HYPERTROPHY [None]
  - HYPOLIPIDAEMIA [None]
  - DERMATITIS CONTACT [None]
  - MUSCLE SPASMS [None]
  - SWELLING [None]
  - CHANGE OF BOWEL HABIT [None]
  - HYPERGLYCAEMIA [None]
  - DYSPEPSIA [None]
  - INTERMITTENT CLAUDICATION [None]
  - COMPRESSION FRACTURE [None]
  - CREPITATIONS [None]
  - SYNOVITIS [None]
  - VAGINAL DISCHARGE [None]
  - EXCORIATION [None]
  - COMPUTERISED TOMOGRAM ABNORMAL [None]
